FAERS Safety Report 16923502 (Version 1)
Quarter: 2019Q4

REPORT INFORMATION
  Report Type: Spontaneous
  Country: FR (occurrence: FR)
  Receive Date: 20191016
  Receipt Date: 20191016
  Transmission Date: 20200122
  Serious: Yes (Hospitalization)
  Sender: FDA-Public Use
  Company Number: FR-TEVA-2019-FR-1121319

PATIENT
  Age: 35 Year
  Sex: Female

DRUGS (2)
  1. SOLUPRED (PREDNISOLONE SODIUM SULFOBENZOATE) [Suspect]
     Active Substance: PREDNISOLONE SODIUM METAZOATE
     Indication: SINUSITIS
     Dosage: 60 MG / DAY THEN 40 FROM 16/09
     Route: 048
     Dates: start: 20190913, end: 20190919
  2. AMOXICILLINE [Suspect]
     Active Substance: AMOXICILLIN
     Indication: SINUSITIS
     Route: 048
     Dates: start: 20190913, end: 20190920

REACTIONS (2)
  - Eosinophil count increased [Recovering/Resolving]
  - Rash [Recovering/Resolving]

NARRATIVE: CASE EVENT DATE: 20190921
